FAERS Safety Report 7656284-X (Version None)
Quarter: 2011Q3

REPORT INFORMATION
  Report Type: 
  Country: None (occurrence: None)
  Receive Date: 20110804
  Receipt Date: 20110729
  Transmission Date: 20111222
  Serious: Yes (Other)
  Sender: FDA-Public Use
  Company Number: TR-GLAXOSMITHKLINE-B0736859A

PATIENT
  Sex: Female
  Weight: 67 kg

DRUGS (2)
  1. ALLI [Suspect]
     Indication: WEIGHT DECREASED
     Route: 065
     Dates: start: 20110410, end: 20110710
  2. ARIMIDEX [Concomitant]
     Indication: BREAST CANCER
     Dosage: 1TAB PER DAY
     Dates: start: 20070101

REACTIONS (1)
  - RASH PRURITIC [None]
